FAERS Safety Report 15949318 (Version 2)
Quarter: 2019Q1

REPORT INFORMATION
  Report Type: Spontaneous
  Country: GB (occurrence: GB)
  Receive Date: 20190212
  Receipt Date: 20190227
  Transmission Date: 20190417
  Serious: Yes (Life-Threatening, Hospitalization, Other)
  Sender: FDA-Public Use
  Company Number: GB-AUROBINDO-08-AUR-03534

PATIENT

DRUGS (1)
  1. PARACETAMOL 500 MG SOLUBLE TABLETS (GSL) [Suspect]
     Active Substance: ACETAMINOPHEN
     Indication: PRODUCT USED FOR UNKNOWN INDICATION
     Dosage: UNK
     Route: 048

REACTIONS (11)
  - Pulmonary embolism [Unknown]
  - Venoocclusive liver disease [Unknown]
  - Pleural effusion [Unknown]
  - Transplant dysfunction [Unknown]
  - Pulmonary sepsis [Unknown]
  - Impaired healing [Unknown]
  - Sinus disorder [Unknown]
  - Acute hepatic failure [Unknown]
  - Overdose [Unknown]
  - Renal failure [Unknown]
  - Hepatic vein thrombosis [Unknown]
